FAERS Safety Report 15457852 (Version 1)
Quarter: 2018Q4

REPORT INFORMATION
  Report Type: Spontaneous
  Country: US (occurrence: US)
  Receive Date: 20181003
  Receipt Date: 20181003
  Transmission Date: 20190204
  Serious: No
  Sender: FDA-Public Use
  Company Number: US-009507513-1809USA006640

PATIENT
  Sex: Female

DRUGS (1)
  1. ASMANEX [Suspect]
     Active Substance: MOMETASONE FUROATE
     Indication: HYPERSENSITIVITY
     Dosage: UNK
     Route: 055

REACTIONS (5)
  - Sensation of foreign body [Unknown]
  - Drug ineffective for unapproved indication [Unknown]
  - Asthma [Unknown]
  - Product physical issue [Unknown]
  - Osteoporosis [Unknown]

NARRATIVE: CASE EVENT DATE: 201801
